FAERS Safety Report 9217099 (Version 1)
Quarter: 2013Q2

REPORT INFORMATION
  Report Type: Spontaneous
  Country: AR (occurrence: AR)
  Receive Date: 20130408
  Receipt Date: 20130408
  Transmission Date: 20140414
  Serious: Yes (Other)
  Sender: FDA-Public Use
  Company Number: AR-BAYER-2012-107921

PATIENT
  Age: 20 Year
  Sex: Female

DRUGS (1)
  1. QLAIRA [Suspect]
     Indication: CONTRACEPTION
     Dosage: UNK
     Route: 048
     Dates: start: 201204, end: 201207

REACTIONS (3)
  - Pregnancy on oral contraceptive [Recovered/Resolved]
  - Foetal death [None]
  - Drug ineffective [None]
